FAERS Safety Report 19648006 (Version 9)
Quarter: 2022Q2

REPORT INFORMATION
  Report Type: Report from Study
  Country: DE (occurrence: DE)
  Receive Date: 20210802
  Receipt Date: 20220624
  Transmission Date: 20220721
  Serious: Yes (Life-Threatening, Other)
  Sender: FDA-Public Use
  Company Number: DE-002147023-NVSC2020DE118864

PATIENT
  Sex: Female
  Weight: 68 kg

DRUGS (15)
  1. LETROZOLE [Suspect]
     Active Substance: LETROZOLE
     Indication: Breast cancer metastatic
     Dosage: 2.5 MILLIGRAM, QD (2.5 MG, QD)/ START DATE: 17-SEP-2019
     Route: 048
  2. LETROZOLE [Suspect]
     Active Substance: LETROZOLE
     Dosage: 2.5 MILLIGRAM, QD (2.5 MG, QD)/START DATE: 11-DEC-2019
     Route: 048
  3. KISQALI [Suspect]
     Active Substance: RIBOCICLIB
     Indication: Breast cancer metastatic
     Dosage: 600 MG,QD(SCHEMA 21 DAYS INTAKE,7 DAYS PAUSE))/11-DEC-2019
     Route: 048
     Dates: end: 20200310
  4. KISQALI [Suspect]
     Active Substance: RIBOCICLIB
     Dosage: 400 MG,QD(SCHEMA 21 DAYS INTAKE, 7 DAYS) START: 16-JUN-2021
     Route: 048
     Dates: end: 20200713
  5. KISQALI [Suspect]
     Active Substance: RIBOCICLIB
     Dosage: 400 MG, QD(SCHEMA 21 DAYS INTAKE, 7 DAYS PAUSE)START: 21-JUL-2020
     Route: 048
     Dates: end: 20200816
  6. KISQALI [Suspect]
     Active Substance: RIBOCICLIB
     Dosage: 600 MG, QD (SCHEMA 21 DAYS INTAKE, 7 DAYS)START:17-MAR-2020
     Route: 048
     Dates: end: 20200608
  7. KISQALI [Suspect]
     Active Substance: RIBOCICLIB
     Dosage: 200 MG,QD(SCHEMA 21 DAYS INTAKE, 7 DAYS PAUSE)START DATE:24-AUG-2020
     Route: 048
  8. KISQALI [Suspect]
     Active Substance: RIBOCICLIB
     Dosage: 600 MG,QD(SCHEMA 21 DAYS INTAKE,7 DAYS PAUSE))/START DATE:14-JAN-2020
     Route: 048
     Dates: end: 20200203
  9. KISQALI [Suspect]
     Active Substance: RIBOCICLIB
     Dosage: 600 MG,QD(SCHEMA 21 DAYS INTAKE,7 DAYS PAUSE))/STAR DATE:11-FEB-2020
     Route: 048
     Dates: end: 20200330
  10. KISQALI [Suspect]
     Active Substance: RIBOCICLIB
     Dosage: 600 MG,QD(SCHEMA 21 DAYS INTAKE,7 DAYS PAUSE))/19-NOV-2019
     Route: 048
     Dates: end: 20191209
  11. KISQALI [Suspect]
     Active Substance: RIBOCICLIB
     Dosage: 600 MG,QD(SCHEMA 21 DAYS INTAKE,7 DAYS PAUSE))/17-SEP-2019
     Route: 048
  12. KISQALI [Suspect]
     Active Substance: RIBOCICLIB
     Dosage: 600 MG,QD(SCHEMA 21 DAYS INTAKE,7 DAYS PAUSE))/START DATE:17-APR-2020
     Route: 048
     Dates: end: 20200604
  13. KISQALI [Suspect]
     Active Substance: RIBOCICLIB
     Dosage: 600 MG,QD(SCHEMA 21 DAYS INTAKE,7 DAYS PAUSE))/18-JUN-2020
     Route: 048
  14. KISQALI [Suspect]
     Active Substance: RIBOCICLIB
     Dosage: 600 MG,QD(SCHEMA 21 DAYS INTAKE,7 DAYS PAUSE))/17-DEC-2019
     Route: 048
     Dates: end: 20200106
  15. KISQALI [Suspect]
     Active Substance: RIBOCICLIB
     Dosage: 600 MG,QD(SCHEMA 21 DAYS INTAKE,7 DAYS PAUSE))/15-OCT-2019
     Route: 048
     Dates: end: 20191104

REACTIONS (19)
  - Neutropenia [Not Recovered/Not Resolved]
  - Neutrophil count decreased [Recovered/Resolved]
  - Syncope [Recovered/Resolved]
  - Lacrimation increased [Recovered/Resolved]
  - Tinnitus [Not Recovered/Not Resolved]
  - Back pain [Recovered/Resolved]
  - Dyspepsia [Unknown]
  - Taste disorder [Unknown]
  - Rash maculo-papular [Recovered/Resolved]
  - Diarrhoea [Recovered/Resolved]
  - Hot flush [Recovered/Resolved]
  - Fatigue [Recovered/Resolved]
  - Myalgia [Recovered/Resolved]
  - Insomnia [Recovered/Resolved]
  - Arthralgia [Recovered/Resolved]
  - Erythema [Recovered/Resolved]
  - Fall [Recovered/Resolved]
  - Dysphagia [Recovering/Resolving]
  - Decreased appetite [Recovering/Resolving]

NARRATIVE: CASE EVENT DATE: 20191002
